FAERS Safety Report 8584280 (Version 3)
Quarter: 2013Q1

REPORT INFORMATION
  Report Type: Spontaneous
  Country: US (occurrence: US)
  Receive Date: 20120529
  Receipt Date: 20130312
  Transmission Date: 20140127
  Serious: Yes (Hospitalization)
  Sender: FDA-Public Use
  Company Number: US-ELI_LILLY_AND_COMPANY-US201202001629

PATIENT
  Age: 78 None
  Sex: Female

DRUGS (10)
  1. FORTEO [Suspect]
     Indication: OSTEOPOROSIS
     Dosage: 20 UG, QD
     Route: 058
     Dates: start: 201110
  2. FORTEO [Suspect]
     Dosage: 20 UG, QD
     Route: 058
  3. FORTEO [Suspect]
     Dosage: 20 UG, QD
     Route: 058
  4. FORTEO [Suspect]
     Dosage: 20 UG, QD
     Route: 058
     Dates: end: 20121229
  5. FORTEO [Suspect]
     Dosage: 20 UG, QD
     Dates: start: 201110, end: 201301
  6. CRESTOR [Concomitant]
  7. PLAVIX [Concomitant]
  8. ASPIRIN [Concomitant]
  9. VITAMIN D NOS [Concomitant]
  10. CALCIUM [Concomitant]

REACTIONS (10)
  - Malaise [Unknown]
  - Dehydration [Unknown]
  - Vomiting [Recovered/Resolved]
  - Fatigue [Unknown]
  - Cataract [Unknown]
  - Nausea [Unknown]
  - Blood electrolytes abnormal [Unknown]
  - Blood calcium increased [Recovering/Resolving]
  - Urine calcium increased [Unknown]
  - Renal disorder [Unknown]
